FAERS Safety Report 5137040-3 (Version None)
Quarter: 2006Q4

REPORT INFORMATION
  Report Type: 
  Country: None (occurrence: None)
  Receive Date: 20061030
  Receipt Date: 20061017
  Transmission Date: 20070319
  Serious: Yes (Disabling, Congenital Anomaly)
  Sender: FDA-Public Use
  Company Number: PHRM2006FR02877

PATIENT
  Sex: Male
  Weight: 3.85 kg

DRUGS (3)
  1. TEGRETOL [Suspect]
     Dosage: MATERNAL DOSE : 800 MG/DAY
     Route: 064
  2. SABRIL [Suspect]
     Dosage: MATERNAL DOSE : 1 G/DAY
     Route: 064
  3. DEPAKENE [Suspect]
     Dosage: MATERNAL DOSE : 2G/DAY
     Route: 064

REACTIONS (4)
  - CONGENITAL CYST [None]
  - DRUG EXPOSURE DURING PREGNANCY [None]
  - DYSMORPHISM [None]
  - RENAL APLASIA [None]
